FAERS Safety Report 4910436-8 (Version None)
Quarter: 2006Q1

REPORT INFORMATION
  Report Type: 
  Country: None (occurrence: None)
  Receive Date: 20060209
  Receipt Date: 20060125
  Transmission Date: 20060701
  Serious: Yes (Life-Threatening, Hospitalization)
  Sender: FDA-Public Use
  Company Number: 13306

PATIENT
  Age: 69 Year
  Sex: Male
  Weight: 90.5 kg

DRUGS (15)
  1. CYTARABINE [Suspect]
     Indication: ACUTE MYELOID LEUKAEMIA
     Dosage: 10 MG/M2 BID ST
     Dates: start: 20051205, end: 20051220
  2. ARSENIC TRIOXIDE [Suspect]
     Indication: ACUTE MYELOID LEUKAEMIA
     Dosage: 22.63 MG QD IV
     Route: 042
     Dates: start: 20051205, end: 20051219
  3. FOLIC ACID [Concomitant]
  4. ATORVASTATIN CALCIUM [Concomitant]
  5. PYRIDOXINE HYDROCHLORIDE INJ [Concomitant]
  6. LATANOPROST [Concomitant]
  7. BYETTA [Concomitant]
  8. DIGOXIN [Concomitant]
  9. DOCUSATE SODIUM [Concomitant]
  10. LANSOPRAZOLE [Concomitant]
  11. SEVELAMER [Concomitant]
  12. METOPROLOL TARTRATE [Concomitant]
  13. TORSEMIDE [Concomitant]
  14. PIPERACILLIN TAZOBACTAM [Concomitant]
  15. METOLAZONE [Concomitant]

REACTIONS (2)
  - RENAL FAILURE [None]
  - SEPSIS [None]
